FAERS Safety Report 4401403-1 (Version None)
Quarter: 2004Q3

REPORT INFORMATION
  Report Type: 
  Country: None (occurrence: None)
  Receive Date: 20040907
  Receipt Date: 20040420
  Transmission Date: 20050211
  Serious: No
  Sender: FDA-Public Use
  Company Number: US-BRISTOL-MYERS SQUIBB COMPANY-12566147

PATIENT
  Age: 87 Year
  Sex: Male
  Weight: 74 kg

DRUGS (5)
  1. AVAPRO [Suspect]
     Route: 048
  2. COUMADIN [Suspect]
     Dosage: DOSAGE: 2.5MG AND 5MG ALTERNATING DAILY
     Route: 048
     Dates: start: 19980101
  3. TOPROL-XL [Concomitant]
  4. SYNTHROID [Concomitant]
  5. DEMADEX [Concomitant]

REACTIONS (1)
  - SKIN ODOUR ABNORMAL [None]
